FAERS Safety Report 24067322 (Version 1)
Quarter: 2024Q3

REPORT INFORMATION
  Report Type: Spontaneous
  Country: US (occurrence: US)
  Receive Date: 20240709
  Receipt Date: 20240709
  Transmission Date: 20241017
  Serious: No
  Sender: AMARIN
  Company Number: US-Amarin Pharma  Inc-2024AMR000235

PATIENT
  Age: 64 Year
  Sex: Female

DRUGS (2)
  1. VASCEPA [Suspect]
     Active Substance: ICOSAPENT ETHYL
     Indication: Blood triglycerides increased
     Dosage: UNKNOWN
  2. VASCEPA [Suspect]
     Active Substance: ICOSAPENT ETHYL
     Indication: Blood cholesterol increased

REACTIONS (5)
  - Poor quality product administered [Unknown]
  - Product colour issue [Unknown]
  - Product odour abnormal [Unknown]
  - Product leakage [Unknown]
  - Product physical issue [Unknown]
